FAERS Safety Report 11221433 (Version 1)
Quarter: 2015Q2

REPORT INFORMATION
  Report Type: Spontaneous
  Country: US (occurrence: US)
  Receive Date: 20150626
  Receipt Date: 20150626
  Transmission Date: 20150821
  Serious: No
  Sender: FDA-Public Use
  Company Number: US-PFIZER INC-2015209505

PATIENT
  Age: 56 Year
  Sex: Female
  Weight: 71.66 kg

DRUGS (2)
  1. IBRANCE [Suspect]
     Active Substance: PALBOCICLIB
     Indication: BREAST CANCER STAGE IV
     Dosage: 125 MG, CYCLIC (DAY 1-21 EVERY 28 DAYS)
     Route: 048
     Dates: start: 20150401, end: 20150619
  2. FEMARA [Suspect]
     Active Substance: LETROZOLE
     Indication: BREAST CANCER STAGE IV
     Dosage: UNK
     Dates: end: 20150619

REACTIONS (2)
  - Disease progression [Unknown]
  - Breast cancer stage IV [Unknown]

NARRATIVE: CASE EVENT DATE: 20150619
